FAERS Safety Report 6916501-8 (Version None)
Quarter: 2010Q3

REPORT INFORMATION
  Report Type: 
  Country: None (occurrence: None)
  Receive Date: 20100810
  Receipt Date: 20100729
  Transmission Date: 20110219
  Serious: Yes (Hospitalization)
  Sender: FDA-Public Use
  Company Number: US-MYLANLABS-2010S1009454

PATIENT
  Age: 71 Year
  Sex: Female
  Weight: 83.92 kg

DRUGS (6)
  1. AMLODIPINE BESYLATE [Suspect]
     Indication: BLOOD PRESSURE INCREASED
     Route: 048
     Dates: start: 20100213, end: 20100213
  2. AMLODIPINE BESYLATE [Suspect]
     Route: 048
     Dates: start: 20100214, end: 20100217
  3. AMLODIPINE BESYLATE [Suspect]
     Route: 048
     Dates: start: 20100218, end: 20100218
  4. FISH OIL [Concomitant]
  5. GLUCOSAMINE [Concomitant]
  6. NAPROXEN SODIUM TABLETS, USP [Concomitant]

REACTIONS (4)
  - CEREBROVASCULAR ACCIDENT [None]
  - GAIT DISTURBANCE [None]
  - OEDEMA PERIPHERAL [None]
  - PAIN IN EXTREMITY [None]
